FAERS Safety Report 7402097-3 (Version None)
Quarter: 2011Q2

REPORT INFORMATION
  Report Type: 
  Country: None (occurrence: None)
  Receive Date: 20110405
  Receipt Date: 20110405
  Transmission Date: 20111010
  Serious: Yes (Hospitalization, Other)
  Sender: FDA-Public Use
  Company Number: None

PATIENT
  Age: 55 Year
  Sex: Female
  Weight: 68.0396 kg

DRUGS (4)
  1. TRIAD STERILE ALCOHOL PREP PAD ISOPROPYL ALCOHOL 70% V/V 1 PAD TRIAD G [Suspect]
     Indication: MULTIPLE SCLEROSIS
     Dosage: ONE PAD EACH SHOT ONCE A DAY SQ
     Route: 058
     Dates: start: 20101102, end: 20110401
  2. TRIAD STERILE ALCOHOL PREP PAD ISOPROPYL ALCOHOL 70% V/V 1 PAD TRIAD G [Suspect]
  3. TRIAD STERILE ALCOHOL PREP PAD ISOPROPYL ALCOHOL 70% V/V 1 PAD TRIAD G [Suspect]
  4. TRIAD STERILE ALCOHOL PREP PAD ISOPROPYL ALCOHOL 70% V/V 1 PAD TRIAD G [Suspect]

REACTIONS (4)
  - OEDEMA PERIPHERAL [None]
  - INFECTION [None]
  - INJECTION SITE REACTION [None]
  - PRODUCT QUALITY ISSUE [None]
